FAERS Safety Report 15013635 (Version 1)
Quarter: 2018Q2

REPORT INFORMATION
  Report Type: Spontaneous
  Country: US (occurrence: US)
  Receive Date: 20180614
  Receipt Date: 20180614
  Transmission Date: 20180711
  Serious: Yes (Other)
  Sender: FDA-Public Use
  Company Number: US-EMD SERONO-230362K09USA

PATIENT
  Sex: Female
  Weight: 104 kg

DRUGS (2)
  1. METFORMIN [Concomitant]
     Active Substance: METFORMIN HYDROCHLORIDE
     Indication: PRODUCT USED FOR UNKNOWN INDICATION
  2. REBIF [Suspect]
     Active Substance: INTERFERON BETA-1A
     Indication: MULTIPLE SCLEROSIS
     Route: 058
     Dates: start: 20081209, end: 20180302

REACTIONS (4)
  - Gait disturbance [Recovered/Resolved]
  - Multiple sclerosis [Unknown]
  - Dementia [Unknown]
  - Facial bones fracture [Recovered/Resolved]
